FAERS Safety Report 21818921 (Version 1)
Quarter: 2023Q1

REPORT INFORMATION
  Report Type: Report from Study
  Country: US (occurrence: US)
  Receive Date: 20230104
  Receipt Date: 20230104
  Transmission Date: 20230418
  Serious: No
  Sender: FDA-Public Use
  Company Number: US-ABBVIE-4214877

PATIENT

DRUGS (5)
  1. HUMIRA [Suspect]
     Active Substance: ADALIMUMAB
     Indication: Product used for unknown indication
     Route: 058
  2. RINVOQ [Suspect]
     Active Substance: UPADACITINIB
     Indication: Psoriatic arthropathy
     Route: 048
  3. METHOTREXATE [Concomitant]
     Active Substance: METHOTREXATE
     Indication: Product used for unknown indication
  4. Coxtentyx [Concomitant]
     Indication: Product used for unknown indication
  5. REMICADE [Concomitant]
     Active Substance: INFLIXIMAB
     Indication: Product used for unknown indication

REACTIONS (3)
  - Drug specific antibody [Unknown]
  - Drug ineffective [Unknown]
  - Pain in extremity [Unknown]

NARRATIVE: CASE EVENT DATE: 20210101
